FAERS Safety Report 5020260-6 (Version None)
Quarter: 2006Q2

REPORT INFORMATION
  Report Type: 
  Country: None (occurrence: None)
  Receive Date: 20060607
  Receipt Date: 20060517
  Transmission Date: 20061013
  Serious: Yes (Hospitalization)
  Sender: FDA-Public Use
  Company Number: FR-AVENTIS-200611816FR

PATIENT
  Age: 80 Year
  Sex: Male
  Weight: 70 kg

DRUGS (20)
  1. LOVENOX [Suspect]
     Indication: PHLEBITIS
     Route: 058
     Dates: start: 20051122, end: 20051205
  2. LOVENOX [Suspect]
     Indication: THROMBOPHLEBITIS
     Route: 058
     Dates: start: 20051122, end: 20051205
  3. ZELITREX [Concomitant]
     Route: 048
     Dates: start: 20051118, end: 20051209
  4. PREVISCAN [Concomitant]
     Route: 048
     Dates: start: 20051201, end: 20051204
  5. MOPRAL [Concomitant]
     Route: 048
     Dates: start: 20051117, end: 20051208
  6. COLCHICINE [Concomitant]
     Route: 048
     Dates: start: 20051201, end: 20051209
  7. METHOTREXATE [Concomitant]
  8. SILOMAT [Concomitant]
  9. GAVISCON [Concomitant]
  10. DIFFU K [Concomitant]
  11. MOTILIUM [Concomitant]
  12. TEMESTA [Concomitant]
  13. DOLIPRANE [Concomitant]
  14. XANAX [Concomitant]
  15. CORTANCYL [Concomitant]
  16. SPECIAFOLDINE [Concomitant]
  17. TOPALGIC [Concomitant]
  18. IMODIUM [Concomitant]
  19. PERMIXON [Concomitant]
  20. TRIFLUCAN [Concomitant]
     Route: 048
     Dates: start: 20051124, end: 20051206

REACTIONS (2)
  - HEPARIN-INDUCED THROMBOCYTOPENIA [None]
  - THROMBOCYTOPENIA [None]
